FAERS Safety Report 9670338 (Version 2)
Quarter: 2014Q1

REPORT INFORMATION
  Report Type: Spontaneous
  Country: ES (occurrence: ES)
  Receive Date: 20131105
  Receipt Date: 20140204
  Transmission Date: 20141002
  Serious: Yes (Hospitalization, Other)
  Sender: FDA-Public Use
  Company Number: ES-GILEAD-2013-0086568

PATIENT
  Age: 36 Year
  Sex: Male

DRUGS (1)
  1. EVIPLERA [Suspect]
     Indication: HIV INFECTION
     Dosage: UNK
     Dates: start: 20130903

REACTIONS (2)
  - Pericarditis [Recovered/Resolved]
  - Rash pruritic [Recovered/Resolved]
